FAERS Safety Report 14952076 (Version 3)
Quarter: 2022Q1

REPORT INFORMATION
  Report Type: 
  Country: GB (occurrence: GB)
  Receive Date: 20180530
  Receipt Date: 20220222
  Transmission Date: 20220423
  Serious: Yes (Other)
  Sender: FDA-Public Use
  Company Number: GB-SYNTHON BV-NL01PV18_46981

PATIENT
  Age: 74 Year
  Sex: Male
  Weight: 105 kg

DRUGS (12)
  1. TAMSULOSIN [Suspect]
     Active Substance: TAMSULOSIN
     Indication: Product used for unknown indication
     Dosage: 400 MICROGRAM, QD
     Route: 065
  2. DUTASTERIDE [Suspect]
     Active Substance: DUTASTERIDE
     Indication: Urinary tract obstruction
     Dosage: 500 MICROGRAM, QD
     Route: 048
     Dates: start: 20180321, end: 20180406
  3. DUTASTERIDE [Suspect]
     Active Substance: DUTASTERIDE
     Dosage: 500 MICROGRAM, QD
     Route: 065
  4. AZATHIOPRINE [Concomitant]
     Active Substance: AZATHIOPRINE
     Indication: Myasthenia gravis
     Dosage: 175 MILLIGRAM, QD, (3X50 MG TABLETS AND 1 25MG TABLET)
     Route: 065
  5. BISOPROLOL [Concomitant]
     Active Substance: BISOPROLOL
     Indication: Heart rate irregular
     Dosage: 1.25 MILLIGRAM, QD, FOR HEART RATE CONTROL
     Route: 065
  6. BISOPROLOL [Concomitant]
     Active Substance: BISOPROLOL
     Dosage: 5 MILLIGRAM, QD
     Route: 065
  7. LANSOPRAZOLE [Concomitant]
     Active Substance: LANSOPRAZOLE
     Indication: Prophylaxis against gastrointestinal ulcer
     Dosage: 15 MILLIGRAM, QD, TO PROTECT STOMACH
     Route: 065
  8. LEVOTHYROXINE SODIUM [Concomitant]
     Active Substance: LEVOTHYROXINE SODIUM
     Dosage: 50 MICROGRAM, QD
     Route: 065
  9. MOMETASONE [Concomitant]
     Active Substance: MOMETASONE
     Dosage: 200 MICROGRAM, QD, (IN EACH NOSTRIL, REDUCE WHEN SYMPTOMS UNDER CONTROL)
     Route: 045
  10. PREDNISOLONE [Concomitant]
     Active Substance: PREDNISOLONE
     Dosage: 10 MILLIGRAM, BID, AS PER NEUROLOGIST
     Route: 065
  11. PYRIDOSTIGMINE BROMIDE [Concomitant]
     Active Substance: PYRIDOSTIGMINE BROMIDE
     Dosage: 60 MILLIGRAM, (1 OR 2 TABLETS TWICE A DAY)
     Route: 065
  12. SIMVASTATIN [Concomitant]
     Active Substance: SIMVASTATIN
     Indication: Hypercholesterolaemia
     Dosage: 40 MILLIGRAM, QD
     Route: 065

REACTIONS (3)
  - Drug interaction [Unknown]
  - Dyspnoea [Recovering/Resolving]
  - Cardiac failure [Recovering/Resolving]
